FAERS Safety Report 5211986-X (Version None)
Quarter: 2007Q1

REPORT INFORMATION
  Report Type: 
  Country: None (occurrence: None)
  Receive Date: 20070118
  Receipt Date: 20070117
  Transmission Date: 20070707
  Serious: Yes (Hospitalization)
  Sender: FDA-Public Use
  Company Number: JP-JPN-A200700016

PATIENT
  Age: 68 Year
  Sex: Female
  Weight: 42 kg

DRUGS (11)
  1. VALTREX [Suspect]
     Indication: HERPES ZOSTER
     Dosage: 1000MG PER DAY
     Route: 048
     Dates: start: 20061231, end: 20061231
  2. THYRADIN S [Concomitant]
     Indication: HYPOTHYROIDISM
     Route: 048
     Dates: start: 20030101
  3. FUROSEMIDE [Concomitant]
     Dosage: 80MG PER DAY
     Route: 048
  4. BLOPRESS [Concomitant]
     Indication: HYPERTENSION
     Dosage: 12MG PER DAY
     Route: 048
  5. ADALAT [Concomitant]
     Indication: HYPERTENSION
     Dosage: 40MG PER DAY
     Route: 048
  6. GASMOTIN [Concomitant]
     Indication: GASTRITIS
     Dosage: 15MG PER DAY
     Route: 048
     Dates: start: 20060419
  7. SELBEX [Concomitant]
     Indication: GASTRIC ULCER
     Dosage: 1.5MG PER DAY
     Route: 048
  8. CALFINA [Concomitant]
     Dosage: .25MCG PER DAY
     Route: 048
  9. GASPORT [Concomitant]
     Indication: GASTRIC ULCER
     Route: 048
     Dates: start: 20060208
  10. PURSENNID [Concomitant]
     Indication: CONSTIPATION
     Dosage: 36MG PER DAY
     Route: 048
  11. VIDARABINE [Concomitant]

REACTIONS (3)
  - DEPRESSED LEVEL OF CONSCIOUSNESS [None]
  - DYSARTHRIA [None]
  - SOMNOLENCE [None]
